FAERS Safety Report 9780956 (Version 1)
Quarter: 2013Q4

REPORT INFORMATION
  Report Type: Spontaneous
  Country: TW (occurrence: None)
  Receive Date: 20131220
  Receipt Date: 20131220
  Transmission Date: 20140711
  Serious: Yes (Death)
  Sender: FDA-Public Use
  Company Number: 2013P1021995

PATIENT
  Age: 80 Year
  Sex: Male
  Weight: 59.4 kg

DRUGS (4)
  1. IRINOTECAN [Suspect]
     Indication: COLON CANCER
     Route: 042
     Dates: start: 20120605, end: 20120607
  2. BEVACIZUMAB [Suspect]
     Indication: COLON CANCER
     Dates: start: 20120605, end: 20120607
  3. 5-FLUOROURACIL [Suspect]
     Indication: COLON CANCER
     Dates: start: 20120605, end: 20120607
  4. FOLINIC ACID [Suspect]
     Indication: COLON CANCER
     Dates: start: 20120605, end: 20120607

REACTIONS (4)
  - Tumour lysis syndrome [None]
  - Haemodialysis [None]
  - Depressed level of consciousness [None]
  - Respiratory failure [None]
